FAERS Safety Report 18258020 (Version 1)
Quarter: 2020Q3

REPORT INFORMATION
  Report Type: Report from Study
  Country: CA (occurrence: CA)
  Receive Date: 20200911
  Receipt Date: 20200911
  Transmission Date: 20201103
  Serious: Yes (Other)
  Sender: FDA-Public Use
  Company Number: CA-JNJFOC-20200100966

PATIENT
  Age: 16 Year
  Sex: Male
  Weight: 62.2 kg

DRUGS (1)
  1. REMICADE [Suspect]
     Active Substance: INFLIXIMAB
     Indication: CROHN^S DISEASE
     Dosage: ON 31?DEC?2019, PATIENT RECEIVED 35TH INFUSION OF 400 MILLIGRAM OF INFLIXIMAB RECOMBINANT
     Route: 042
     Dates: start: 20160329

REACTIONS (1)
  - Melaena [Unknown]

NARRATIVE: CASE EVENT DATE: 201912
